FAERS Safety Report 18701632 (Version 1)
Quarter: 2021Q1

REPORT INFORMATION
  Report Type: Report from Study
  Country: PL (occurrence: PL)
  Receive Date: 20210105
  Receipt Date: 20210105
  Transmission Date: 20210419
  Serious: Yes (Other)
  Sender: FDA-Public Use
  Company Number: PL-GILEAD-2020-0511278

PATIENT
  Age: 4 Decade
  Sex: Female
  Weight: 65 kg

DRUGS (1)
  1. SOFOSBUVIR W/VELPATASVIR [Suspect]
     Active Substance: SOFOSBUVIR\VELPATASVIR
     Indication: HEPATITIS C
     Dosage: 1 DOSAGE FORM, ONCE
     Route: 065

REACTIONS (1)
  - Anaphylactic shock [Recovered/Resolved]
